FAERS Safety Report 7379569-3 (Version None)
Quarter: 2011Q1

REPORT INFORMATION
  Report Type: 
  Country: None (occurrence: None)
  Receive Date: 20110329
  Receipt Date: 20110315
  Transmission Date: 20110831
  Serious: Yes (Hospitalization)
  Sender: FDA-Public Use
  Company Number: US-JNJFOC-20110103337

PATIENT
  Sex: Male

DRUGS (18)
  1. REMICADE [Suspect]
     Route: 042
  2. NEXIUM [Concomitant]
  3. REMICADE [Suspect]
     Indication: ANKYLOSING SPONDYLITIS
     Route: 042
  4. REMICADE [Suspect]
     Route: 042
  5. REMICADE [Suspect]
     Route: 042
  6. SULFASALAZINE [Concomitant]
  7. NEURONTIN [Concomitant]
  8. FLEXERIL [Concomitant]
  9. CALCIUM [Concomitant]
  10. ACTOS [Concomitant]
  11. VITAMIN D [Concomitant]
  12. REMICADE [Suspect]
     Route: 042
  13. REMICADE [Suspect]
     Route: 042
  14. REMICADE [Suspect]
     Route: 042
  15. ONGLYZA [Concomitant]
  16. DILANTIN [Concomitant]
  17. FELDENE [Concomitant]
  18. REMICADE [Suspect]
     Route: 042

REACTIONS (2)
  - B-CELL LYMPHOMA [None]
  - HODGKIN'S DISEASE [None]
